FAERS Safety Report 7038683-2 (Version None)
Quarter: 2010Q4

REPORT INFORMATION
  Report Type: 
  Country: None (occurrence: None)
  Receive Date: 20101011
  Receipt Date: 20101006
  Transmission Date: 20110411
  Serious: Yes (Hospitalization, Other)
  Sender: FDA-Public Use
  Company Number: US-PFIZER INC-2006153908

PATIENT
  Sex: Female
  Weight: 69.4 kg

DRUGS (12)
  1. CHANTIX [Suspect]
     Indication: SMOKING CESSATION THERAPY
     Dosage: DAILY
     Dates: start: 20060101
  2. CHANTIX [Suspect]
     Dosage: 0.5 MG, 1X/DAY
     Route: 048
     Dates: start: 20100909, end: 20100901
  3. CHANTIX [Suspect]
     Dosage: UNK
     Route: 048
     Dates: start: 20100901
  4. CYMBALTA [Concomitant]
     Dosage: UNK
  5. SYNTHROID [Concomitant]
  6. LEXAPRO [Concomitant]
     Dosage: UNK
  7. NORVASC [Concomitant]
  8. BENICAR [Concomitant]
     Dosage: UNK
  9. ZETIA [Concomitant]
  10. CALTRATE [Concomitant]
  11. COLACE [Concomitant]
  12. PAXIL [Concomitant]

REACTIONS (5)
  - BLOOD PRESSURE INCREASED [None]
  - DEPRESSION [None]
  - MASTECTOMY [None]
  - SLEEP DISORDER [None]
  - THYROID OPERATION [None]
